FAERS Safety Report 20394278 (Version 1)
Quarter: 2022Q1

REPORT INFORMATION
  Report Type: Spontaneous
  Country: DE (occurrence: DE)
  Receive Date: 20220129
  Receipt Date: 20220129
  Transmission Date: 20220424
  Serious: Yes (Hospitalization)
  Sender: FDA-Public Use
  Company Number: None

PATIENT
  Age: 49 Year
  Sex: Male
  Weight: 65 kg

DRUGS (8)
  1. FLUOROURACIL [Suspect]
     Active Substance: FLUOROURACIL
     Indication: Product used for unknown indication
     Route: 042
  2. LOPERAMIDE [Concomitant]
     Active Substance: LOPERAMIDE
     Dosage: STRENGTH:2MG, 2 MG, AS NEEDED, TABLETS
     Route: 048
  3. METAMIZOLE [Concomitant]
     Active Substance: METAMIZOLE
     Dosage: 500 MG/ML, FOUR TIMES FORTY DROPS
     Route: 048
  4. METOCLOPRAMIDE [Concomitant]
     Active Substance: METOCLOPRAMIDE
     Dosage: STRENGTH:10MG, 10 MG, 1-1-1-0, TABLETS
     Route: 048
  5. MORPHINE [Concomitant]
     Active Substance: MORPHINE
     Dosage: STRENGTH:2%, 2, IN THE MORNING EIGHT DROPS AS NEEDED
     Route: 048
  6. MORPHINE SULFATE [Concomitant]
     Active Substance: MORPHINE SULFATE
     Dosage: STRENGTH:10MG, 10 MG, 0-0-1-0, TABLETS
     Route: 048
  7. TEMAZEP [Concomitant]
     Dosage: STRENGTH:10MG, 10 MG, AS NEEDED, CAPSULES
     Route: 048
  8. INNOHEP [Concomitant]
     Active Substance: TINZAPARIN SODIUM
     Dosage: 20000/0.7 IU/ML, 0-0-1-0, PRE-FILLED SYRINGES
     Route: 058

REACTIONS (6)
  - Penile swelling [Unknown]
  - General physical health deterioration [Unknown]
  - Abdominal pain [Unknown]
  - Diarrhoea [Unknown]
  - Fatigue [Unknown]
  - Dysuria [Unknown]
